FAERS Safety Report 4485498-5 (Version None)
Quarter: 2004Q4

REPORT INFORMATION
  Report Type: 
  Country: None (occurrence: None)
  Receive Date: 20041026
  Receipt Date: 20040915
  Transmission Date: 20050328
  Serious: Yes (Other)
  Sender: FDA-Public Use
  Company Number: PHBS2004CA12224

PATIENT
  Age: 38 Year
  Sex: Female
  Weight: 54 kg

DRUGS (10)
  1. ZELNORM [Suspect]
     Dosage: 6 MG, BID
     Dates: start: 20040615
  2. ZELNORM [Suspect]
     Dosage: 9 MG/DAY
     Dates: end: 20040928
  3. CYTOTEC [Concomitant]
     Dosage: 200 MG, TID
  4. NEURONTIN [Concomitant]
     Dosage: 300 MG, TID
  5. ACYCLOVIR [Concomitant]
  6. DILANTIN [Concomitant]
     Dosage: 100 MG, TID
  7. LOSEC [Concomitant]
     Dosage: 20 MG, QID
  8. RESTORIL [Concomitant]
     Dosage: 15 MG, QD
  9. GRAVOL TAB [Concomitant]
     Dosage: 50 MG, QD
  10. FRISIUM [Concomitant]
     Dosage: 10 MG, BID
     Route: 048

REACTIONS (4)
  - FLATULENCE [None]
  - HAEMATOCHEZIA [None]
  - STOOLS WATERY [None]
  - WEIGHT DECREASED [None]
